FAERS Safety Report 16824017 (Version 1)
Quarter: 2019Q3

REPORT INFORMATION
  Report Type: Spontaneous
  Country: IT (occurrence: NO)
  Receive Date: 20190918
  Receipt Date: 20190918
  Transmission Date: 20191005
  Serious: Yes (Other)
  Sender: FDA-Public Use
  Company Number: IT-SUNOVION-2019SUN003869

PATIENT

DRUGS (1)
  1. LATUDA [Suspect]
     Active Substance: LURASIDONE HYDROCHLORIDE
     Indication: PSYCHOTIC DISORDER
     Dosage: THE DOSAGE WAS GRADUALLY INCREASED FROM 0.5 TO 1.5 TABLET IN THE EVENING.09/FEBRUARY/2019: ? TAB...
     Route: 048
     Dates: start: 20190209, end: 20190303

REACTIONS (3)
  - Malaise [Recovered/Resolved]
  - Off label use [Recovered/Resolved]
  - Electrocardiogram QT prolonged [Recovered/Resolved]

NARRATIVE: CASE EVENT DATE: 20190303
